FAERS Safety Report 23687186 (Version 4)
Quarter: 2024Q3

REPORT INFORMATION
  Report Type: Spontaneous
  Country: RU (occurrence: RU)
  Receive Date: 20240329
  Receipt Date: 20240701
  Transmission Date: 20241016
  Serious: Yes (Other)
  Sender: NOVARTIS
  Company Number: RU-002147023-NVSC2024RU064178

PATIENT
  Age: 70 Year
  Sex: Female

DRUGS (3)
  1. RIBOCICLIB [Suspect]
     Active Substance: RIBOCICLIB
     Indication: Breast cancer metastatic
     Dosage: 600 MG, QD (3 FILMCOATED TABLETS OF 200  MG))(ONCE PER  DAY IN  SUCCESSION  FOR 21  DAYS,  FOLLOWED
     Route: 048
     Dates: start: 202306, end: 202309
  2. ANASTROZOLE [Concomitant]
     Active Substance: ANASTROZOLE
     Indication: Product used for unknown indication
     Dosage: 1 MG, QD
     Route: 065
  3. ZOLEDRONIC ACID [Concomitant]
     Active Substance: ZOLEDRONIC ACID
     Indication: Product used for unknown indication
     Dosage: 4 MG (ONCE IN 28 DAYS)
     Route: 042

REACTIONS (5)
  - Skin ulcer [Recovered/Resolved]
  - Rash [Recovered/Resolved]
  - Alanine aminotransferase increased [Recovered/Resolved]
  - Aspartate aminotransferase increased [Recovered/Resolved]
  - Metastases to lung [Unknown]

NARRATIVE: CASE EVENT DATE: 20230801
